FAERS Safety Report 23286181 (Version 10)
Quarter: 2024Q3

REPORT INFORMATION
  Report Type: Spontaneous
  Country: GB (occurrence: GB)
  Receive Date: 20231212
  Receipt Date: 20240912
  Transmission Date: 20241017
  Serious: Yes (Hospitalization, Other)
  Sender: SANDOZ
  Company Number: GB-SANDOZ-SDZ2023GB063071

PATIENT
  Sex: Female

DRUGS (66)
  1. CARBOPLATIN [Suspect]
     Active Substance: CARBOPLATIN
     Dosage: UNK CYCLE (4 CYCLES), START DATE: 2023 ROUTE OF ADMIN (FREE TEXT): UNKNOWN ROUTE
     Route: 065
     Dates: start: 2023
  2. CARBOPLATIN [Suspect]
     Active Substance: CARBOPLATIN
     Dosage: UNK, CYCLE (3 CYCLE) ROUTE OF ADMIN (FREE TEXT): UNKNOWN ROUTE
     Route: 065
  3. CARBOPLATIN [Suspect]
     Active Substance: CARBOPLATIN
     Indication: Metaplastic breast carcinoma
     Dosage: UNK, CYCLIC (4 CYCLES)
     Route: 065
     Dates: start: 2023
  4. CARBOPLATIN [Suspect]
     Active Substance: CARBOPLATIN
     Indication: Triple negative breast cancer
     Dosage: UNK, CYCLIC (4 CYCLES)
     Route: 065
     Dates: start: 2023
  5. CARBOPLATIN [Suspect]
     Active Substance: CARBOPLATIN
     Dosage: UNK, CYCLIC (4 CYCLES)
     Route: 065
     Dates: start: 2023
  6. CARBOPLATIN [Suspect]
     Active Substance: CARBOPLATIN
     Dosage: UNK, CYCLIC (4 CYCLES)
     Route: 065
     Dates: start: 2023
  7. CARBOPLATIN [Suspect]
     Active Substance: CARBOPLATIN
     Dosage: UNK, CYCLIC (4 CYCLES)
     Route: 065
     Dates: start: 2023
  8. CARBOPLATIN [Suspect]
     Active Substance: CARBOPLATIN
     Dosage: UNK, CYCLIC (4 CYCLES)
     Route: 065
     Dates: start: 2023
  9. CARBOPLATIN [Suspect]
     Active Substance: CARBOPLATIN
     Dosage: UNK, CYCLIC (4 CYCLES), START DATE: 2023 ROUTE OF ADMIN (FREE TEXT): UNKNOWN ROUTE
     Route: 065
  10. CARBOPLATIN [Suspect]
     Active Substance: CARBOPLATIN
     Dosage: UNK, CYCLIC (4 CYCLES), START DATE: 2023 ROUTE OF ADMIN (FREE TEXT): UNKNOWN ROUTE
     Route: 065
  11. CARBOPLATIN [Suspect]
     Active Substance: CARBOPLATIN
     Dosage: UNK, CYCLIC (4 CYCLES), START DATE: 2023 ROUTE OF ADMIN (FREE TEXT): UNKNOWN ROUTE
     Route: 065
  12. CARBOPLATIN [Suspect]
     Active Substance: CARBOPLATIN
     Dosage: UNK, CYCLIC (4 CYCLES), START DATE: 2023 ROUTE OF ADMIN (FREE TEXT): UNKNOWN ROUTE
     Route: 065
  13. CARBOPLATIN [Suspect]
     Active Substance: CARBOPLATIN
     Dosage: UNK, CYCLIC (4 CYCLES), START DATE: 2023 ROUTE OF ADMIN (FREE TEXT): UNKNOWN ROUTE
     Route: 065
  14. CARBOPLATIN [Suspect]
     Active Substance: CARBOPLATIN
     Dosage: UNK, CYCLE (3 CYCLE)
     Route: 065
  15. CYCLOPHOSPHAMIDE [Suspect]
     Active Substance: CYCLOPHOSPHAMIDE
     Indication: Metaplastic breast carcinoma
     Dosage: UNK, CYCLIC (4 CYCLES)
     Route: 065
  16. CYCLOPHOSPHAMIDE [Suspect]
     Active Substance: CYCLOPHOSPHAMIDE
     Indication: Triple negative breast cancer
     Dosage: UNK, CYCLIC (4 CYCLES)
     Route: 065
  17. CYCLOPHOSPHAMIDE [Suspect]
     Active Substance: CYCLOPHOSPHAMIDE
     Dosage: UNK, CYCLIC (4 CYCLES)
     Route: 065
     Dates: start: 2023
  18. CYCLOPHOSPHAMIDE [Suspect]
     Active Substance: CYCLOPHOSPHAMIDE
     Dosage: UNK, CYCLIC (4 CYCLES)
     Route: 065
     Dates: start: 2023
  19. CYCLOPHOSPHAMIDE [Suspect]
     Active Substance: CYCLOPHOSPHAMIDE
     Dosage: UNK, CYCLIC (4 CYCLES)
     Route: 065
     Dates: start: 2023
  20. CYCLOPHOSPHAMIDE [Suspect]
     Active Substance: CYCLOPHOSPHAMIDE
     Dosage: UNK, CYCLIC (4 CYCLES)
     Route: 065
     Dates: start: 2023
  21. CYCLOPHOSPHAMIDE [Suspect]
     Active Substance: CYCLOPHOSPHAMIDE
     Dosage: UNK, CYCLIC (4 CYCLES)
     Route: 065
     Dates: start: 2023
  22. CYCLOPHOSPHAMIDE [Suspect]
     Active Substance: CYCLOPHOSPHAMIDE
     Dosage: UNK, CYCLIC (4 CYCLES)
     Route: 065
     Dates: start: 2023
  23. CYCLOPHOSPHAMIDE [Suspect]
     Active Substance: CYCLOPHOSPHAMIDE
     Dosage: UNK, CYCLIC (4 CYCLES)
     Route: 065
  24. CYCLOPHOSPHAMIDE [Suspect]
     Active Substance: CYCLOPHOSPHAMIDE
     Dosage: UNK, CYCLIC (4 CYCLES)
     Route: 065
  25. CYCLOPHOSPHAMIDE [Suspect]
     Active Substance: CYCLOPHOSPHAMIDE
     Dosage: UNK, CYCLIC (4 CYCLES)
     Route: 065
  26. CYCLOPHOSPHAMIDE [Suspect]
     Active Substance: CYCLOPHOSPHAMIDE
     Dosage: UNK, CYCLIC (4 CYCLES)
     Route: 065
  27. CYCLOPHOSPHAMIDE [Suspect]
     Active Substance: CYCLOPHOSPHAMIDE
     Dosage: UNK, CYCLIC (4 CYCLES)
     Route: 065
  28. CYCLOPHOSPHAMIDE [Suspect]
     Active Substance: CYCLOPHOSPHAMIDE
     Dosage: UNK, CYCLIC (4 CYCLES)
     Route: 065
  29. CYCLOPHOSPHAMIDE [Suspect]
     Active Substance: CYCLOPHOSPHAMIDE
     Dosage: UNK, CYCLIC (4 CYCLES)
     Route: 065
  30. CYCLOPHOSPHAMIDE [Suspect]
     Active Substance: CYCLOPHOSPHAMIDE
     Dosage: UNK, CYCLIC (4 CYCLES)
     Route: 065
  31. EPIRUBICIN [Suspect]
     Active Substance: EPIRUBICIN
     Dosage: UNK
     Route: 065
  32. EPIRUBICIN [Suspect]
     Active Substance: EPIRUBICIN
     Dosage: UNK
     Route: 065
  33. EPIRUBICIN [Suspect]
     Active Substance: EPIRUBICIN
     Indication: Metaplastic breast carcinoma
     Dosage: UNK, CYCLIC (4 CYCLES)
     Route: 065
     Dates: start: 2023
  34. EPIRUBICIN [Suspect]
     Active Substance: EPIRUBICIN
     Indication: Triple negative breast cancer
     Dosage: UNK, CYCLIC (4 CYCLES)
     Route: 065
  35. EPIRUBICIN [Suspect]
     Active Substance: EPIRUBICIN
     Dosage: UNK, CYCLIC (4 CYCLES)
     Route: 065
  36. EPIRUBICIN [Suspect]
     Active Substance: EPIRUBICIN
     Dosage: UNK, CYCLIC (4 CYCLES)
     Route: 065
  37. EPIRUBICIN [Suspect]
     Active Substance: EPIRUBICIN
     Dosage: UNK, CYCLIC (4 CYCLES)
     Route: 065
  38. EPIRUBICIN [Suspect]
     Active Substance: EPIRUBICIN
     Dosage: UNK, CYCLIC (4 CYCLES)
     Route: 065
  39. EPIRUBICIN [Suspect]
     Active Substance: EPIRUBICIN
     Dosage: UNK, CYCLIC (4 CYCLES)
     Route: 065
  40. EPIRUBICIN [Suspect]
     Active Substance: EPIRUBICIN
     Dosage: UNK, CYCLIC (4 CYCLES)
     Route: 065
  41. EPIRUBICIN [Suspect]
     Active Substance: EPIRUBICIN
     Dosage: UNK, CYCLIC (4 CYCLES)
     Route: 065
  42. EPIRUBICIN [Suspect]
     Active Substance: EPIRUBICIN
     Dosage: UNK, CYCLIC (4 CYCLES)
     Route: 065
  43. EPIRUBICIN [Suspect]
     Active Substance: EPIRUBICIN
     Dosage: UNK, CYCLIC (4 CYCLES)
     Route: 065
  44. EPIRUBICIN [Suspect]
     Active Substance: EPIRUBICIN
     Dosage: UNK, CYCLIC (4 CYCLES) ROUTE OF ADMIN (FREE TEXT): UNKNOWN ROUTE
     Route: 065
  45. EPIRUBICIN [Suspect]
     Active Substance: EPIRUBICIN
     Dosage: UNK, CYCLIC (4 CYCLES) ROUTE OF ADMIN (FREE TEXT): UNKNOWN ROUTE
     Route: 065
  46. EPIRUBICIN [Suspect]
     Active Substance: EPIRUBICIN
     Dosage: UNK, CYCLIC (4 CYCLES) ROUTE OF ADMIN (FREE TEXT): UNKNOWN ROUTE
     Route: 065
  47. EPIRUBICIN [Suspect]
     Active Substance: EPIRUBICIN
     Dosage: UNK, CYCLIC (4 CYCLES) ROUTE OF ADMIN (FREE TEXT): UNKNOWN ROUTE
     Route: 065
  48. EPIRUBICIN [Suspect]
     Active Substance: EPIRUBICIN
     Dosage: UNK, CYCLIC (4 CYCLES) ROUTE OF ADMIN (FREE TEXT): UNKNOWN ROUTE
     Route: 065
  49. KEYTRUDA [Suspect]
     Active Substance: PEMBROLIZUMAB
     Indication: Metaplastic breast carcinoma
     Dosage: UNK, CYCLIC (4 CYCLES)
     Route: 065
     Dates: start: 20230523, end: 202305
  50. KEYTRUDA [Suspect]
     Active Substance: PEMBROLIZUMAB
     Indication: Triple negative breast cancer
     Dosage: UNK, CYCLIC (4 CYCLES)
     Route: 065
     Dates: start: 20230523, end: 202305
  51. KEYTRUDA [Suspect]
     Active Substance: PEMBROLIZUMAB
     Dosage: UNK, CYCLIC (4 CYCLES)
     Route: 065
     Dates: start: 20230523, end: 202305
  52. KEYTRUDA [Suspect]
     Active Substance: PEMBROLIZUMAB
     Indication: Triple negative breast cancer
     Dosage: CYCLE (4 CYCLES)
     Route: 065
     Dates: start: 2023, end: 20230523
  53. KEYTRUDA [Suspect]
     Active Substance: PEMBROLIZUMAB
     Dosage: CYCLE (4 CYCLES)
     Route: 065
     Dates: start: 2023, end: 20230523
  54. KEYTRUDA [Suspect]
     Active Substance: PEMBROLIZUMAB
     Dosage: CYCLE (4 CYCLES)
     Route: 065
     Dates: start: 2023, end: 20230523
  55. PACLITAXEL [Suspect]
     Active Substance: PACLITAXEL
     Dosage: UNK
     Route: 065
     Dates: start: 2023, end: 2023
  56. PACLITAXEL [Suspect]
     Active Substance: PACLITAXEL
     Dosage: UNK
     Route: 065
  57. PACLITAXEL [Suspect]
     Active Substance: PACLITAXEL
     Indication: Triple negative breast cancer
     Dosage: UNK, CYCLIC (3 CYCLES)
     Route: 065
     Dates: start: 2023
  58. PACLITAXEL [Suspect]
     Active Substance: PACLITAXEL
     Dosage: UNK, CYCLIC (3 CYCLES)
     Route: 065
     Dates: start: 2023
  59. PACLITAXEL [Suspect]
     Active Substance: PACLITAXEL
     Dosage: UNK, CYCLIC (3 CYCLES)
     Route: 065
     Dates: start: 2023
  60. PACLITAXEL [Suspect]
     Active Substance: PACLITAXEL
     Indication: Metaplastic breast carcinoma
     Dosage: UNK, CYCLIC (4 CYCLES)
     Route: 065
     Dates: start: 2023, end: 2023
  61. PACLITAXEL [Suspect]
     Active Substance: PACLITAXEL
     Dosage: UNK, CYCLIC (4 CYCLES)
     Route: 065
     Dates: start: 2023
  62. PACLITAXEL [Suspect]
     Active Substance: PACLITAXEL
     Dosage: UNK, CYCLIC (4 CYCLES)
     Route: 065
     Dates: start: 2023
  63. PACLITAXEL [Suspect]
     Active Substance: PACLITAXEL
     Dosage: UNK, CYCLIC (4 CYCLES)
     Route: 065
     Dates: start: 2023
  64. PACLITAXEL [Suspect]
     Active Substance: PACLITAXEL
     Dosage: UNK, CYCLIC (4 CYCLES)
     Route: 065
     Dates: start: 2023
  65. PACLITAXEL [Suspect]
     Active Substance: PACLITAXEL
     Dosage: UNK, CYCLIC (4 CYCLES)
     Route: 065
     Dates: start: 2023
  66. PACLITAXEL [Suspect]
     Active Substance: PACLITAXEL
     Dosage: UNK, CYCLIC (4 CYCLES)
     Route: 065
     Dates: start: 2023

REACTIONS (6)
  - Hypertransaminasaemia [Recovering/Resolving]
  - Pneumonitis [Recovering/Resolving]
  - Hepatic function abnormal [Recovering/Resolving]
  - Therapy non-responder [Unknown]
  - Drug ineffective [Unknown]
  - Neoplasm progression [Unknown]

NARRATIVE: CASE EVENT DATE: 20230101
